FAERS Safety Report 19743236 (Version 1)
Quarter: 2021Q3

REPORT INFORMATION
  Report Type: Spontaneous
  Country: US (occurrence: US)
  Receive Date: 20210825
  Receipt Date: 20210825
  Transmission Date: 20211014
  Serious: No
  Sender: FDA-Public Use
  Company Number: US-SA-2016SA007117

PATIENT
  Age: 23 Year
  Sex: Female
  Weight: 40.82 kg

DRUGS (15)
  1. LOVENOX [Concomitant]
     Active Substance: ENOXAPARIN SODIUM
     Dosage: 1 DF,UNK
     Dates: start: 20141223
  2. ALDURAZYME [Suspect]
     Active Substance: LARONIDASE
     Indication: MUCOPOLYSACCHARIDOSIS
     Dosage: 1.75 MG/KG,QW
     Route: 041
     Dates: start: 20050314
  3. IBUPROFEN. [Concomitant]
     Active Substance: IBUPROFEN
     Dosage: 15 ML,PRN
     Dates: start: 20150303
  4. DIFLUCAN [Concomitant]
     Active Substance: FLUCONAZOLE
     Dosage: 1 DF,QW
     Dates: start: 20140923
  5. SINGULAIR [Concomitant]
     Active Substance: MONTELUKAST SODIUM
     Dosage: 2 DF,QD
     Dates: start: 20130827
  6. SYSTANE (HYPROMELLOSE 2910 (4000 MPA.S)) [Concomitant]
     Active Substance: HYPROMELLOSE 2910 (4000 MPA.S)
     Dosage: 1 DF,TID
     Dates: start: 20140206
  7. LORATADINE. [Concomitant]
     Active Substance: LORATADINE
     Dosage: 10 MG,QD
     Dates: start: 20150609
  8. VESICARE [Concomitant]
     Active Substance: SOLIFENACIN SUCCINATE
     Dosage: 1 DF,QD
     Dates: start: 20140206
  9. SALBUTAMOL [Concomitant]
     Active Substance: ALBUTEROL
     Dosage: 2 DF,PRN
     Dates: start: 20081008
  10. DELSYM [Concomitant]
     Active Substance: DEXTROMETHORPHAN
     Dosage: 1 DF,BID
     Dates: start: 20150303
  11. QVAR [Concomitant]
     Active Substance: BECLOMETHASONE DIPROPIONATE
     Dosage: 2 DF,BID
     Dates: start: 20110101
  12. ACETAMINOPHEN. [Concomitant]
     Active Substance: ACETAMINOPHEN
     Dosage: 2 DF,QD
     Dates: start: 20101008
  13. PREDNISONE. [Concomitant]
     Active Substance: PREDNISONE
     Dosage: 1 DF,QD
     Dates: start: 20140206
  14. OXYGEN. [Concomitant]
     Active Substance: OXYGEN
     Dosage: 2 L,PRN
     Dates: start: 20120306
  15. DIPHENHYDRAMINE. [Concomitant]
     Active Substance: DIPHENHYDRAMINE
     Dosage: 1 DF,PRN
     Dates: start: 20110101

REACTIONS (1)
  - Oedema peripheral [Unknown]
